FAERS Safety Report 25565408 (Version 1)
Quarter: 2025Q3

REPORT INFORMATION
  Report Type: Spontaneous
  Country: US (occurrence: US)
  Receive Date: 20250716
  Receipt Date: 20250716
  Transmission Date: 20251021
  Serious: No
  Sender: NOVO NORDISK
  Company Number: US-NOVOPROD-1298292

PATIENT
  Sex: Female

DRUGS (2)
  1. OZEMPIC [Suspect]
     Active Substance: SEMAGLUTIDE
     Route: 058
  2. OZEMPIC [Suspect]
     Active Substance: SEMAGLUTIDE
     Indication: Diabetes mellitus
     Route: 058
     Dates: start: 20240916

REACTIONS (6)
  - Fall [Recovered/Resolved]
  - Head injury [Recovered/Resolved]
  - Injection site streaking [Not Recovered/Not Resolved]
  - Wrong technique in product usage process [Unknown]
  - Product communication issue [Unknown]
  - Wrong technique in product usage process [Not Recovered/Not Resolved]
